FAERS Safety Report 19125822 (Version 1)
Quarter: 2021Q2

REPORT INFORMATION
  Report Type: Spontaneous
  Country: US (occurrence: US)
  Receive Date: 20210413
  Receipt Date: 20210413
  Transmission Date: 20210717
  Serious: Yes (Other)
  Sender: FDA-Public Use
  Company Number: US-GLAXOSMITHKLINE-US2021GSK074561

PATIENT
  Sex: Male

DRUGS (4)
  1. ZANTAC [Suspect]
     Active Substance: RANITIDINE HYDROCHLORIDE
     Indication: HYPERCHLORHYDRIA
     Dosage: 75 MG, WHENEVER NEEDED 1?2 TIMES A DAY
     Route: 065
     Dates: start: 199701, end: 200101
  2. ZANTAC [Suspect]
     Active Substance: RANITIDINE HYDROCHLORIDE
     Dosage: 150 MG, WHENEVER NEEDED 1?2 TIMES A DAY
     Route: 065
     Dates: start: 199701, end: 200101
  3. ZANTAC [Suspect]
     Active Substance: RANITIDINE HYDROCHLORIDE
     Dosage: 150 MG, WHENEVER NEEDED 1?2 TIMES A DAY
     Route: 065
     Dates: start: 199701, end: 200101
  4. ZANTAC [Suspect]
     Active Substance: RANITIDINE HYDROCHLORIDE
     Indication: HYPERCHLORHYDRIA
     Dosage: 75 MG, WHENEVER NEEDED 1?2 TIMES A DAY
     Route: 065
     Dates: start: 199701, end: 200101

REACTIONS (1)
  - Colorectal cancer [Unknown]
